FAERS Safety Report 7656513-2 (Version None)
Quarter: 2011Q3

REPORT INFORMATION
  Report Type: 
  Country: None (occurrence: None)
  Receive Date: 20110804
  Receipt Date: 20100930
  Transmission Date: 20111222
  Serious: No
  Sender: FDA-Public Use
  Company Number: US-BAUSCH-2010BL005522

PATIENT
  Age: 62 Year
  Sex: Female

DRUGS (3)
  1. OPCON-A [Suspect]
     Indication: EYE PRURITUS
     Route: 047
     Dates: start: 20100930, end: 20100930
  2. ADVANCED EYE RELIEF/DRY EYE/REJUVENATION LUBRICANT EYE DROPS [Concomitant]
     Indication: DRY EYE
     Route: 047
  3. OPCON-A [Suspect]
     Indication: OCULAR HYPERAEMIA
     Route: 047
     Dates: start: 20100930, end: 20100930

REACTIONS (1)
  - EYE IRRITATION [None]
